FAERS Safety Report 4490381-5 (Version None)
Quarter: 2004Q4

REPORT INFORMATION
  Report Type: 
  Country: None (occurrence: None)
  Receive Date: 20041028
  Receipt Date: 20041022
  Transmission Date: 20050328
  Serious: Yes (Hospitalization)
  Sender: FDA-Public Use
  Company Number: FRP04000882

PATIENT
  Age: 74 Year
  Sex: Female

DRUGS (3)
  1. ACTONEL [Suspect]
  2. GARDENAL ^AVENTIS^ (PHENOBARBITAL) [Concomitant]
  3. ALEPSAL (ATROPA BELLADONNA EXTRACT, PHENOBARBITAL) [Concomitant]

REACTIONS (2)
  - OEDEMA [None]
  - OESOPHAGEAL DISORDER [None]
